FAERS Safety Report 5493855-3 (Version None)
Quarter: 2007Q4

REPORT INFORMATION
  Report Type: 
  Country: None (occurrence: None)
  Receive Date: 20071019
  Receipt Date: 20071005
  Transmission Date: 20080405
  Serious: Yes (Hospitalization)
  Sender: FDA-Public Use
  Company Number: 2007S1010097

PATIENT
  Age: 73 Year
  Sex: Female

DRUGS (6)
  1. METOPROLOL TARTRATE [Suspect]
     Indication: HYPERTENSION
     Dosage: 50 MG; DAILY;
  2. LISINOPRIL [Suspect]
     Indication: HYPERTENSION
     Dosage: 20 MG, DAILY;
  3. HYDROCHLOROTHIAZIDE [Suspect]
     Indication: HYPERTENSION
     Dosage: 12.5 MG; TWICE A DAY;
  4. FELODIPINE [Suspect]
     Indication: HYPERTENSION
     Dosage: 5 MG, DAILY;
  5. CLONIDINE HYDROCHLORIDE [Suspect]
     Indication: HYPERTENSION
     Dosage: 0.2 MG; TWICE A DAY;
  6. DILTIAZEM HYDROCHLORIDE [Suspect]
     Indication: HYPERTENSION
     Dosage: 180 MG; DAILY;

REACTIONS (7)
  - ASTHENIA [None]
  - DIZZINESS [None]
  - DYSPNOEA EXERTIONAL [None]
  - EXTRASYSTOLES [None]
  - NODAL RHYTHM [None]
  - PRESYNCOPE [None]
  - SINUS BRADYCARDIA [None]
